FAERS Safety Report 10698132 (Version 1)
Quarter: 2014Q4

REPORT INFORMATION
  Report Type: Spontaneous
  Country: US (occurrence: None)
  Receive Date: 20141223
  Receipt Date: 20141223
  Transmission Date: 20150529
  Serious: No
  Sender: FDA-Public Use
  Company Number: 1000071915

PATIENT
  Age: 49 Year
  Sex: Female

DRUGS (5)
  1. LINZESS [Suspect]
     Active Substance: LINACLOTIDE
     Indication: CONSTIPATION
     Dosage: 145 MCG EVERY THREE DAYS (145 MCG, 1 IN 3 D), ORAL
     Route: 048
     Dates: start: 201410, end: 201410
  2. ATENOLOL. [Concomitant]
     Active Substance: ATENOLOL
  3. MIRALAX (POLYETHYLENE GLYCOL) [Concomitant]
  4. PROTONIX [Concomitant]
     Active Substance: PANTOPRAZOLE SODIUM
  5. LINZESS [Suspect]
     Active Substance: LINACLOTIDE
     Indication: CONSTIPATION
     Dosage: 145 MCG (145 MCG, 1 IN 1 D), ORAL
     Route: 048
     Dates: start: 2014, end: 2014

REACTIONS (3)
  - Fatigue [None]
  - Palpitations [None]
  - Off label use [None]

NARRATIVE: CASE EVENT DATE: 2014
